FAERS Safety Report 13390700 (Version 1)
Quarter: 2017Q1

REPORT INFORMATION
  Report Type: Spontaneous
  Country: US (occurrence: US)
  Receive Date: 20170331
  Receipt Date: 20170331
  Transmission Date: 20170429
  Serious: No
  Sender: FDA-Public Use
  Company Number: US-AMGEN-USASP2017046323

PATIENT
  Age: 68 Year
  Sex: Male

DRUGS (2)
  1. ENBREL [Suspect]
     Active Substance: ETANERCEPT
     Indication: PSORIATIC ARTHROPATHY
     Dosage: 50 MG, WEEKLY
     Route: 065
     Dates: start: 2007
  2. ENBREL [Suspect]
     Active Substance: ETANERCEPT
     Dosage: 25 MG, TWICE WEEKLY 3 TO 4 DAYS APART
     Route: 065

REACTIONS (3)
  - Accidental exposure to product [Unknown]
  - Drug dose omission [Unknown]
  - Injury associated with device [Unknown]

NARRATIVE: CASE EVENT DATE: 20170324
